FAERS Safety Report 8172771-2 (Version None)
Quarter: 2012Q1

REPORT INFORMATION
  Report Type: 
  Country: None (occurrence: None)
  Receive Date: 20120223
  Receipt Date: 20120215
  Transmission Date: 20120608
  Serious: Yes (Death, Hospitalization)
  Sender: FDA-Public Use
  Company Number: 2011MA010026

PATIENT
  Age: 21 Year
  Sex: Male

DRUGS (4)
  1. SEROQUEL [Suspect]
     Indication: OBSESSIVE-COMPULSIVE DISORDER
     Dosage: 800 MG;QD;PO
     Route: 048
     Dates: start: 20091101, end: 20110705
  2. LYRICA [Suspect]
     Indication: OBSESSIVE-COMPULSIVE DISORDER
     Dosage: 225 MG;BID;PO
     Route: 048
     Dates: start: 20091101, end: 20110705
  3. ANTIPSYCHOTICS [Concomitant]
  4. FLUOXETINE [Suspect]
     Indication: OBSESSIVE-COMPULSIVE DISORDER
     Dosage: 60 MG;QD;PO
     Route: 048
     Dates: start: 20091101, end: 20110705

REACTIONS (13)
  - PANCREATITIS NECROTISING [None]
  - SEPTIC SHOCK [None]
  - VOMITING [None]
  - SYSTEMIC INFLAMMATORY RESPONSE SYNDROME [None]
  - PYREXIA [None]
  - ACUTE ABDOMEN [None]
  - ARTERIOSCLEROSIS [None]
  - HYPERPYREXIA [None]
  - MULTI-ORGAN FAILURE [None]
  - ABDOMINAL PAIN [None]
  - RHABDOMYOLYSIS [None]
  - PANCREATITIS HAEMORRHAGIC [None]
  - INFECTIOUS PERITONITIS [None]
